FAERS Safety Report 18651915 (Version 1)
Quarter: 2020Q4

REPORT INFORMATION
  Report Type: Spontaneous
  Country: US (occurrence: US)
  Receive Date: 20201222
  Receipt Date: 20201222
  Transmission Date: 20210114
  Serious: Yes (Other)
  Sender: FDA-Public Use
  Company Number: US-SA-2020SA363350

PATIENT

DRUGS (2)
  1. REBIF [Concomitant]
     Active Substance: INTERFERON BETA-1A
     Dosage: UNK
     Route: 065
  2. AUBAGIO [Suspect]
     Active Substance: TERIFLUNOMIDE
     Indication: MULTIPLE SCLEROSIS
     Dosage: UNK
     Route: 065

REACTIONS (8)
  - Neuralgia [Unknown]
  - Multiple sclerosis [Unknown]
  - Sleep deficit [Unknown]
  - Depression [Unknown]
  - Alopecia [Unknown]
  - Unevaluable event [Unknown]
  - Multiple sclerosis relapse [Unknown]
  - Impaired quality of life [Unknown]
